FAERS Safety Report 14440579 (Version 1)
Quarter: 2018Q1

REPORT INFORMATION
  Report Type: Report from Study
  Country: US (occurrence: US)
  Receive Date: 20180125
  Receipt Date: 20180125
  Transmission Date: 20180509
  Serious: Yes (Other)
  Sender: FDA-Public Use
  Company Number: US-MYLANLABS-2018M1005181

PATIENT
  Age: 30 Year
  Sex: Male

DRUGS (14)
  1. PROPRANOLOL [Concomitant]
     Active Substance: PROPRANOLOL HYDROCHLORIDE
     Indication: AGITATION
  2. CODEINE [Concomitant]
     Active Substance: CODEINE
     Indication: MUSCLE CONTRACTIONS INVOLUNTARY
     Dosage: UNK
     Route: 065
  3. ALCOHOL. [Concomitant]
     Active Substance: ALCOHOL
     Indication: AGITATION
  4. CAFFEINE. [Suspect]
     Active Substance: CAFFEINE
     Indication: MUSCLE CONTRACTIONS INVOLUNTARY
     Dosage: UNK
     Route: 065
  5. CAFFEINE. [Suspect]
     Active Substance: CAFFEINE
     Indication: AGITATION
  6. TOPIRAMATE. [Suspect]
     Active Substance: TOPIRAMATE
     Indication: AGITATION
  7. CARBAMAZEPINE. [Suspect]
     Active Substance: CARBAMAZEPINE
     Indication: MUSCLE CONTRACTIONS INVOLUNTARY
     Dosage: UNK
     Route: 065
  8. PROPRANOLOL [Concomitant]
     Active Substance: PROPRANOLOL HYDROCHLORIDE
     Indication: MUSCLE CONTRACTIONS INVOLUNTARY
     Dosage: UNK
     Route: 065
  9. CODEINE [Concomitant]
     Active Substance: CODEINE
     Indication: AGITATION
  10. CYCLOBENZAPRINE. [Concomitant]
     Active Substance: CYCLOBENZAPRINE
     Indication: AGITATION
  11. ALCOHOL. [Concomitant]
     Active Substance: ALCOHOL
     Indication: MUSCLE CONTRACTIONS INVOLUNTARY
     Dosage: UNK
     Route: 065
  12. CYCLOBENZAPRINE. [Concomitant]
     Active Substance: CYCLOBENZAPRINE
     Indication: MUSCLE CONTRACTIONS INVOLUNTARY
     Dosage: UNK
     Route: 065
  13. TOPIRAMATE. [Suspect]
     Active Substance: TOPIRAMATE
     Indication: MUSCLE CONTRACTIONS INVOLUNTARY
     Dosage: UNK
     Route: 065
  14. CARBAMAZEPINE. [Suspect]
     Active Substance: CARBAMAZEPINE
     Indication: AGITATION

REACTIONS (15)
  - Headache [Recovered/Resolved]
  - Somnolence [Recovered/Resolved]
  - Amnesia [Unknown]
  - Photophobia [Recovered/Resolved]
  - Aphasia [Unknown]
  - Gastrooesophageal reflux disease [Unknown]
  - Irritable bowel syndrome [Unknown]
  - Cognitive disorder [Unknown]
  - Disturbance in attention [Unknown]
  - Dizziness [Unknown]
  - Nausea [Recovered/Resolved]
  - Palpitations [Unknown]
  - Condition aggravated [Unknown]
  - Vomiting [Recovered/Resolved]
  - Gastritis [Unknown]
